FAERS Safety Report 20207563 (Version 1)
Quarter: 2021Q4

REPORT INFORMATION
  Report Type: Spontaneous
  Country: US (occurrence: US)
  Receive Date: 20211220
  Receipt Date: 20211220
  Transmission Date: 20220303
  Serious: Yes (Other)
  Sender: FDA-Public Use
  Company Number: US-PFIZER INC-202101779802

PATIENT
  Age: 76 Year
  Sex: Male
  Weight: 81.65 kg

DRUGS (3)
  1. LYRICA [Suspect]
     Active Substance: PREGABALIN
     Indication: Diabetes mellitus
     Dosage: 200 MG, UNK
     Route: 048
  2. LYRICA [Suspect]
     Active Substance: PREGABALIN
     Indication: Hypoaesthesia
  3. ALEVE [Concomitant]
     Active Substance: NAPROXEN SODIUM
     Indication: Chest pain
     Dosage: 220 MG, UNK
     Dates: start: 202110, end: 20211205

REACTIONS (11)
  - Skin cancer [Unknown]
  - Skin mass [Unknown]
  - Off label use [Unknown]
  - Dyspnoea [Not Recovered/Not Resolved]
  - Bone pain [Not Recovered/Not Resolved]
  - Pneumonitis [Unknown]
  - Musculoskeletal discomfort [Unknown]
  - Pelvic discomfort [Unknown]
  - Chest pain [Not Recovered/Not Resolved]
  - Cough [Not Recovered/Not Resolved]
  - Dermal cyst [Unknown]

NARRATIVE: CASE EVENT DATE: 20110101
